FAERS Safety Report 7937233-3 (Version None)
Quarter: 2011Q4

REPORT INFORMATION
  Report Type: 
  Country: None (occurrence: None)
  Receive Date: 20111123
  Receipt Date: 20111118
  Transmission Date: 20120403
  Serious: Yes (Other)
  Sender: FDA-Public Use
  Company Number: FR-GLAXOSMITHKLINE-B0763734A

PATIENT
  Sex: Female

DRUGS (15)
  1. ETOMIDATE [Concomitant]
     Route: 065
  2. IMURAN [Concomitant]
     Route: 065
  3. SUFENTA PRESERVATIVE FREE [Concomitant]
     Route: 065
  4. KETAMINE HCL [Concomitant]
     Route: 065
  5. THYMOGLOBULIN [Concomitant]
     Route: 042
  6. POLARAMINE [Concomitant]
     Route: 042
  7. DIPRIVAN [Concomitant]
     Route: 065
  8. CEFAMANDOLE SODIUM [Concomitant]
     Route: 065
  9. TRAMADOL HCL [Concomitant]
     Route: 065
  10. ZANTAC [Suspect]
     Indication: PRODUCT USED FOR UNKNOWN INDICATION
     Dosage: 50MG SINGLE DOSE
     Route: 042
     Dates: start: 20111007, end: 20111008
  11. ZOFRAN [Concomitant]
     Route: 065
  12. MIDAZOLAM HCL [Concomitant]
     Route: 065
  13. SOLU-MEDROL [Concomitant]
     Route: 042
  14. ACETAMINOPHEN [Concomitant]
     Route: 042
  15. TRACRIUM [Concomitant]
     Route: 065

REACTIONS (3)
  - DYSPHAGIA [None]
  - TONSILLAR HYPERTROPHY [None]
  - SALIVARY GLAND ENLARGEMENT [None]
